FAERS Safety Report 25619429 (Version 2)
Quarter: 2025Q3

REPORT INFORMATION
  Report Type: Spontaneous
  Country: US (occurrence: None)
  Receive Date: 20250729
  Receipt Date: 20250820
  Transmission Date: 20251021
  Serious: No
  Sender: INCYTE
  Company Number: US-INCYTE CORPORATION-2025IN008049

PATIENT
  Age: 91 Year
  Weight: 63.488 kg

DRUGS (1)
  1. JAKAFI [Suspect]
     Active Substance: RUXOLITINIB
     Indication: Polycythaemia vera
     Dosage: 10 MILLIGRAM, BID

REACTIONS (3)
  - Blood pressure fluctuation [Unknown]
  - Blood pressure abnormal [Unknown]
  - Cardiac disorder [Unknown]
